FAERS Safety Report 6200105-9 (Version None)
Quarter: 2009Q2

REPORT INFORMATION
  Report Type: 
  Country: None (occurrence: None)
  Receive Date: 20090522
  Receipt Date: 20090513
  Transmission Date: 20091009
  Serious: Yes (Hospitalization)
  Sender: FDA-Public Use
  Company Number: PHHY2009HU16607

PATIENT
  Age: 64 Year
  Sex: Female

DRUGS (2)
  1. ZOLEDRONIC ACID [Suspect]
     Indication: METASTASES TO BONE
     Dosage: UNK
  2. PAMIDRONATE DISODIUM [Suspect]
     Indication: METASTASES TO BONE

REACTIONS (7)
  - BONE DISORDER [None]
  - IMPAIRED HEALING [None]
  - MAXILLOFACIAL OPERATION [None]
  - OSTEONECROSIS [None]
  - POSTOPERATIVE WOUND COMPLICATION [None]
  - SURGERY [None]
  - TOOTH EXTRACTION [None]
